FAERS Safety Report 4347748-5 (Version None)
Quarter: 2004Q2

REPORT INFORMATION
  Report Type: 
  Country: None (occurrence: None)
  Receive Date: 20040422
  Receipt Date: 20040415
  Transmission Date: 20050107
  Serious: Yes (Other)
  Sender: FDA-Public Use
  Company Number: 200403621

PATIENT
  Sex: Female

DRUGS (1)
  1. IMODIUM A-D [Suspect]
     Dates: start: 20040401

REACTIONS (2)
  - CONVULSION [None]
  - SWELLING FACE [None]
